FAERS Safety Report 5813368-6 (Version None)
Quarter: 2008Q3

REPORT INFORMATION
  Report Type: 
  Country: None (occurrence: None)
  Receive Date: 20080717
  Receipt Date: 20080706
  Transmission Date: 20090109
  Serious: Yes (Other)
  Sender: FDA-Public Use
  Company Number: GB-ROCHE-574794

PATIENT
  Sex: Female
  Weight: 76.2 kg

DRUGS (1)
  1. ORLISTAT [Suspect]
     Indication: OBESITY
     Route: 048
     Dates: start: 20080313

REACTIONS (2)
  - CORONARY ARTERIAL STENT INSERTION [None]
  - LIVER DISORDER [None]
